FAERS Safety Report 6981273-8 (Version None)
Quarter: 2010Q3

REPORT INFORMATION
  Report Type: 
  Country: None (occurrence: None)
  Receive Date: 20100914
  Receipt Date: 20100910
  Transmission Date: 20110219
  Serious: No
  Sender: FDA-Public Use
  Company Number: US-CEPHALON-2010004836

PATIENT
  Sex: Female

DRUGS (2)
  1. FENTORA [Suspect]
     Indication: CANCER PAIN
     Route: 002
  2. FENTANYL CITRATE [Concomitant]
     Route: 062

REACTIONS (1)
  - CIRCUMSTANCE OR INFORMATION CAPABLE OF LEADING TO MEDICATION ERROR [None]
